FAERS Safety Report 5934198-0 (Version None)
Quarter: 2008Q4

REPORT INFORMATION
  Report Type: 
  Country: None (occurrence: None)
  Receive Date: 20081027
  Receipt Date: 20081014
  Transmission Date: 20090506
  Serious: Yes (Hospitalization)
  Sender: FDA-Public Use
  Company Number: 235025J08USA

PATIENT
  Age: 36 Year
  Sex: Male
  Weight: 70 kg

DRUGS (12)
  1. REBIF [Suspect]
     Indication: MULTIPLE SCLEROSIS
     Dosage: 44 MCG, 3 IN 1 WEEKS, SUBCUTANEOUS
     Route: 058
     Dates: start: 20070829
  2. AMITRIPTYLNE HYDROCHLORIDE (AMITRIPTYLINE HYDROCHLORIDE) [Concomitant]
  3. CLONIDINE HCL [Concomitant]
  4. PEPCID [Concomitant]
  5. PROCARDIA XL [Concomitant]
  6. ENALAPRIL (ENALAPRIL /00574901/) [Concomitant]
  7. LOW DOSE ASA (ACETYLSALCYLIC ACID) [Concomitant]
  8. LISINOPRIL [Concomitant]
  9. LOTAB (VICODIN) [Concomitant]
  10. PAROXETINE HCL [Concomitant]
  11. SERTRALINE [Concomitant]
  12. CYCLOBENZAPRINE [Concomitant]

REACTIONS (18)
  - AGGRESSION [None]
  - ANXIETY [None]
  - CARDIAC FLUTTER [None]
  - CONFUSIONAL STATE [None]
  - DEPRESSION [None]
  - DYSPNOEA [None]
  - ECONOMIC PROBLEM [None]
  - FATIGUE [None]
  - HYPERTENSION [None]
  - INJECTION SITE NODULE [None]
  - IRRITABILITY [None]
  - MOOD SWINGS [None]
  - OBSESSIVE-COMPULSIVE DISORDER [None]
  - OSTEOARTHRITIS [None]
  - OSTEOPOROSIS [None]
  - THINKING ABNORMAL [None]
  - TREATMENT NONCOMPLIANCE [None]
  - TREMOR [None]
